FAERS Safety Report 24631760 (Version 6)
Quarter: 2025Q1

REPORT INFORMATION
  Report Type: Report from Study
  Country: ES (occurrence: ES)
  Receive Date: 20241118
  Receipt Date: 20250228
  Transmission Date: 20250409
  Serious: Yes (Other)
  Sender: ABBVIE
  Company Number: ES-ABBVIE-5989836

PATIENT
  Age: 79 Year
  Sex: Male

DRUGS (4)
  1. CARBIDOPA\LEVODOPA [Suspect]
     Active Substance: CARBIDOPA\LEVODOPA
     Indication: Parkinson^s disease
     Route: 058
     Dates: start: 202411
  2. CARBIDOPA\LEVODOPA [Suspect]
     Active Substance: CARBIDOPA\LEVODOPA
     Route: 058
     Dates: start: 20241023, end: 202411
  3. CARBIDOPA\LEVODOPA [Suspect]
     Active Substance: CARBIDOPA\LEVODOPA
     Route: 058
  4. PRAMIPEXOLE [Concomitant]
     Active Substance: PRAMIPEXOLE
     Indication: Product used for unknown indication
     Dates: start: 20241111, end: 20241111

REACTIONS (27)
  - Haematoma [Not Recovered/Not Resolved]
  - Somnambulism [Unknown]
  - Puncture site erythema [Not Recovered/Not Resolved]
  - Faecaloma [Recovering/Resolving]
  - Abdominal mass [Not Recovered/Not Resolved]
  - Agitation [Not Recovered/Not Resolved]
  - Limb injury [Unknown]
  - Mobility decreased [Not Recovered/Not Resolved]
  - Device power source issue [Unknown]
  - Inflammation [Unknown]
  - Pain in extremity [Unknown]
  - Confusional state [Not Recovered/Not Resolved]
  - Loss of personal independence in daily activities [Unknown]
  - Tremor [Unknown]
  - Asthenia [Unknown]
  - Tremor [Not Recovered/Not Resolved]
  - Amnesia [Unknown]
  - On and off phenomenon [Recovering/Resolving]
  - Therapeutic product effect decreased [Not Recovered/Not Resolved]
  - Freezing phenomenon [Not Recovered/Not Resolved]
  - Clumsiness [Not Recovered/Not Resolved]
  - Adverse reaction [Unknown]
  - Obstruction [Not Recovered/Not Resolved]
  - Confusional state [Unknown]
  - Pain [Unknown]
  - Disorientation [Unknown]
  - Walking aid user [Unknown]

NARRATIVE: CASE EVENT DATE: 20240101
